FAERS Safety Report 14388509 (Version 4)
Quarter: 2019Q3

REPORT INFORMATION
  Report Type: Report from Study
  Country: US (occurrence: US)
  Receive Date: 20180115
  Receipt Date: 20190701
  Transmission Date: 20191004
  Serious: Yes (Hospitalization)
  Sender: FDA-Public Use
  Company Number: PHHO2018US000503

PATIENT
  Age: 44 Year
  Sex: Male
  Weight: 63.39 kg

DRUGS (6)
  1. FLUOCINONIDE. [Concomitant]
     Active Substance: FLUOCINONIDE
     Indication: RASH
     Dosage: 0.05 %, BID
     Route: 065
  2. KISQALI [Suspect]
     Active Substance: RIBOCICLIB
     Dosage: 500 MG, QD
     Route: 048
     Dates: start: 20180110
  3. GSK1120212 [Suspect]
     Active Substance: TRAMETINIB
     Indication: NEOPLASM
     Dosage: 2 MG, QD
     Route: 048
     Dates: start: 20171220, end: 20171230
  4. MINOCYCLINE [Concomitant]
     Active Substance: MINOCYCLINE HYDROCHLORIDE
     Indication: PROPHYLAXIS
     Dosage: 100 MG, BID
     Route: 048
     Dates: start: 20171220
  5. KISQALI [Suspect]
     Active Substance: RIBOCICLIB
     Indication: NEOPLASM
     Dosage: 500 MG, QD
     Route: 048
     Dates: start: 20171227, end: 20171230
  6. GSK1120212 [Suspect]
     Active Substance: TRAMETINIB
     Dosage: 2 MG, QD
     Route: 048
     Dates: start: 20180110

REACTIONS (2)
  - Dehydration [Recovered/Resolved]
  - Presyncope [Recovered/Resolved]

NARRATIVE: CASE EVENT DATE: 20171230
